FAERS Safety Report 6380005-4 (Version None)
Quarter: 2009Q3

REPORT INFORMATION
  Report Type: 
  Country: None (occurrence: None)
  Receive Date: 20090928
  Receipt Date: 20090917
  Transmission Date: 20100115
  Serious: Yes (Other)
  Sender: FDA-Public Use
  Company Number: BE-ELI_LILLY_AND_COMPANY-BE200909004532

PATIENT
  Age: 6 Year
  Sex: Female
  Weight: 30 kg

DRUGS (3)
  1. STRATTERA [Suspect]
     Indication: AGITATION
     Dosage: 10 MG, UNK
  2. STRATTERA [Suspect]
     Dosage: 18 MG, UNK
  3. STRATTERA [Suspect]
     Dosage: 25 MG, UNK

REACTIONS (1)
  - INTESTINAL OBSTRUCTION [None]
